FAERS Safety Report 9310225 (Version 2)
Quarter: 2013Q2

REPORT INFORMATION
  Report Type: Spontaneous
  Country: JP (occurrence: JP)
  Receive Date: 20130527
  Receipt Date: 20130606
  Transmission Date: 20140414
  Serious: Yes (Hospitalization, Other)
  Sender: FDA-Public Use
  Company Number: PHHY2013JP052115

PATIENT
  Age: 37 Year
  Sex: Female
  Weight: 41 kg

DRUGS (6)
  1. CICLOSPORIN [Suspect]
     Indication: MYASTHENIA GRAVIS
     Dosage: 200 MG, PER DAY
  2. PREDNISOLONE [Suspect]
     Dosage: 15 MG, EVERY OTHER DAY
  3. PREDNISOLONE [Suspect]
     Dosage: 20 MG, EVERY OTHER DAY
  4. PREDNISOLONE [Suspect]
     Dosage: 15 MG, EVERY OTHER DAY
  5. HYDRALAZINE [Suspect]
     Indication: PRE-ECLAMPSIA
     Dosage: 30 MG PER DAY
  6. METHYLDOPA [Suspect]
     Indication: PRE-ECLAMPSIA
     Dosage: 750 MG PER DAY

REACTIONS (17)
  - Pre-eclampsia [Unknown]
  - Vomiting in pregnancy [Unknown]
  - Dysarthria [Unknown]
  - Myasthenia gravis [Unknown]
  - Eyelid ptosis [Unknown]
  - Uterine contractions during pregnancy [Unknown]
  - Bradycardia [Recovered/Resolved]
  - Oliguria [Unknown]
  - Swelling [Unknown]
  - Weight increased [Unknown]
  - Thrombocytopenia [Unknown]
  - Hepatic enzyme increased [Unknown]
  - Malaise [Unknown]
  - Dysphagia [Unknown]
  - Premature delivery [Unknown]
  - Maternal exposure during pregnancy [Unknown]
  - Exposure during breast feeding [Unknown]
